FAERS Safety Report 24318350 (Version 1)
Quarter: 2024Q3

REPORT INFORMATION
  Report Type: Spontaneous
  Country: CO (occurrence: CO)
  Receive Date: 20240913
  Receipt Date: 20240913
  Transmission Date: 20241017
  Serious: Yes (Death)
  Sender: ELI LILLY AND CO
  Company Number: CO-ELI_LILLY_AND_COMPANY-CO202409007068

PATIENT
  Sex: Female

DRUGS (2)
  1. VERZENIO [Suspect]
     Active Substance: ABEMACICLIB
     Indication: Product used for unknown indication
     Dosage: 150 MG, UNKNOWN
     Route: 065
  2. LETROZOLE [Concomitant]
     Active Substance: LETROZOLE
     Indication: Product used for unknown indication

REACTIONS (1)
  - Aneurysm [Fatal]
